FAERS Safety Report 23460476 (Version 2)
Quarter: 2024Q1

REPORT INFORMATION
  Report Type: Spontaneous
  Country: US (occurrence: US)
  Receive Date: 20240131
  Receipt Date: 20240202
  Transmission Date: 20240410
  Serious: No
  Sender: FDA-Public Use
  Company Number: US-ABBVIE-5605927

PATIENT
  Age: 72 Year
  Sex: Female

DRUGS (4)
  1. LINZESS [Suspect]
     Active Substance: LINACLOTIDE
     Indication: Diverticulitis
     Dosage: LAST ADMIN DATE: JAN 2024?FORM STRENGTH: 145 MILLIGRAM
     Route: 048
     Dates: start: 20240122
  2. LINZESS [Suspect]
     Active Substance: LINACLOTIDE
     Indication: Diverticulitis
     Dosage: FORM STRENGTH: 145 MILLIGRAM
     Route: 048
  3. LINZESS [Suspect]
     Active Substance: LINACLOTIDE
     Indication: Diverticulitis
     Dosage: FORM STRENGTH: 72 MILLIGRAM
     Route: 048
     Dates: start: 202401, end: 202401
  4. LINZESS [Suspect]
     Active Substance: LINACLOTIDE
     Indication: Diverticulitis
     Dosage: FORM STRENGTH: 145 MILLIGRAM
     Route: 048

REACTIONS (6)
  - Abdominal distension [Not Recovered/Not Resolved]
  - Diarrhoea [Unknown]
  - Drug ineffective [Not Recovered/Not Resolved]
  - Middle insomnia [Not Recovered/Not Resolved]
  - Adverse food reaction [Unknown]
  - Illness [Not Recovered/Not Resolved]

NARRATIVE: CASE EVENT DATE: 20240101
